FAERS Safety Report 13575049 (Version 2)
Quarter: 2017Q2

REPORT INFORMATION
  Report Type: Report from Study
  Country: None (occurrence: NL)
  Receive Date: 20170523
  Receipt Date: 20170602
  Transmission Date: 20170830
  Serious: Yes (Other)
  Sender: FDA-Public Use
  Company Number: NL-ABBVIE-16P-114-1728794-00

PATIENT
  Sex: Female
  Weight: 49 kg

DRUGS (8)
  1. OMEPRAZOLE. [Concomitant]
     Active Substance: OMEPRAZOLE
     Indication: PRODUCT USED FOR UNKNOWN INDICATION
  2. PARACETAMOL [Concomitant]
     Active Substance: ACETAMINOPHEN
     Indication: PRODUCT USED FOR UNKNOWN INDICATION
  3. DUODOPA [Suspect]
     Active Substance: CARBIDOPA\LEVODOPA
     Indication: PARKINSON^S DISEASE
     Dosage: MD: 11.7, CD: 4.2, ED: 1.0
     Route: 050
     Dates: start: 20160118
  4. MACROGOL [Concomitant]
     Active Substance: POLYETHYLENE GLYCOLS
     Indication: PRODUCT USED FOR UNKNOWN INDICATION
  5. MADOPAR [Concomitant]
     Active Substance: BENSERAZIDE HYDROCHLORIDE\LEVODOPA
     Indication: PRODUCT USED FOR UNKNOWN INDICATION
  6. OXYCODONE [Concomitant]
     Active Substance: OXYCODONE
     Indication: PRODUCT USED FOR UNKNOWN INDICATION
  7. THYRAX [Concomitant]
     Active Substance: LEVOTHYROXINE
     Indication: PRODUCT USED FOR UNKNOWN INDICATION
  8. VITAMIN D [Concomitant]
     Active Substance: CHOLECALCIFEROL
     Indication: PRODUCT USED FOR UNKNOWN INDICATION

REACTIONS (17)
  - Hallucination [Recovered/Resolved]
  - Fibroma [Recovered/Resolved]
  - Delusion [Recovered/Resolved]
  - Anxiety [Not Recovered/Not Resolved]
  - Sleep disorder [Unknown]
  - Stoma site erythema [Unknown]
  - Arthralgia [Not Recovered/Not Resolved]
  - Dyschezia [Not Recovered/Not Resolved]
  - Hallucination [Not Recovered/Not Resolved]
  - Hypokinesia [Not Recovered/Not Resolved]
  - Musculoskeletal pain [Not Recovered/Not Resolved]
  - Nocturia [Not Recovered/Not Resolved]
  - General physical health deterioration [Not Recovered/Not Resolved]
  - Post procedural complication [Not Recovered/Not Resolved]
  - Comminuted fracture [Not Recovered/Not Resolved]
  - Dyskinesia [Not Recovered/Not Resolved]
  - Delusion [Not Recovered/Not Resolved]

NARRATIVE: CASE EVENT DATE: 2016
